FAERS Safety Report 14984925 (Version 1)
Quarter: 2018Q2

REPORT INFORMATION
  Report Type: Spontaneous
  Country: US (occurrence: US)
  Receive Date: 20180515
  Receipt Date: 20180515
  Transmission Date: 20180711
  Serious: Yes (Hospitalization)
  Sender: FDA-Public Use
  Company Number: None

PATIENT
  Age: 58 Year
  Sex: Male
  Weight: 101.97 kg

DRUGS (1)
  1. WARFARIN [Suspect]
     Active Substance: WARFARIN
     Indication: CARDIAC VALVE PROSTHESIS USER
     Dates: start: 20160315

REACTIONS (10)
  - Nausea [None]
  - Tunnel vision [None]
  - Faeces discoloured [None]
  - Dizziness [None]
  - Syncope [None]
  - Dyspnoea [None]
  - Haemorrhage [None]
  - Anaemia [None]
  - Hyperhidrosis [None]
  - International normalised ratio increased [None]

NARRATIVE: CASE EVENT DATE: 20180424
